FAERS Safety Report 7274769-5 (Version None)
Quarter: 2011Q1

REPORT INFORMATION
  Report Type: 
  Country: None (occurrence: None)
  Receive Date: 20110204
  Receipt Date: 20110125
  Transmission Date: 20110831
  Serious: Yes (Other)
  Sender: FDA-Public Use
  Company Number: US-JNJFOC-20101100303

PATIENT
  Sex: Female
  Weight: 78.02 kg

DRUGS (17)
  1. ASACOL [Concomitant]
  2. ADDERALL 10 [Concomitant]
     Route: 048
  3. ACIPHEX [Concomitant]
  4. INFLIXIMAB, RECOMBINANT [Suspect]
     Indication: COLITIS ULCERATIVE
     Route: 042
  5. INFLIXIMAB, RECOMBINANT [Suspect]
     Route: 042
  6. VALTREX [Concomitant]
     Route: 048
  7. CYANOCOBALAMIN [Concomitant]
     Route: 030
  8. ZANTAC [Concomitant]
  9. WELLBUTRIN [Concomitant]
  10. MULTI-VITAMINS [Concomitant]
  11. INFLIXIMAB, RECOMBINANT [Suspect]
     Route: 042
  12. TYLENOL W/ CODEINE NO. 3 [Concomitant]
     Dosage: 1 TABLET EVERY 4 HOUR AS NEEDED
     Route: 048
  13. PREDNISONE [Concomitant]
  14. METRONIDAZOLE [Concomitant]
     Dosage: APPLY TOPICALLY THINLY DAILY.
     Route: 061
  15. PERCOCET [Concomitant]
     Dosage: 1 TAB EVERY 4 HOURS AS NEEDED FOR PAIN
  16. INFLIXIMAB, RECOMBINANT [Suspect]
     Route: 042
  17. FERROUS SULFATE TAB [Concomitant]
     Route: 048

REACTIONS (25)
  - HEPATIC STEATOSIS [None]
  - ATTENTION DEFICIT/HYPERACTIVITY DISORDER [None]
  - PALLOR [None]
  - ARTHRALGIA [None]
  - FATIGUE [None]
  - PYODERMA GANGRENOSUM [None]
  - NAUSEA [None]
  - HEADACHE [None]
  - HYPERTENSION [None]
  - ANXIETY [None]
  - PLEURAL EFFUSION [None]
  - CHEST PAIN [None]
  - LYMPHADENOPATHY [None]
  - COLITIS ULCERATIVE [None]
  - FLUSHING [None]
  - DRUG INEFFECTIVE [None]
  - PERICARDIAL EFFUSION [None]
  - LUPUS-LIKE SYNDROME [None]
  - PLANTAR FASCIITIS [None]
  - WEIGHT INCREASED [None]
  - ROSACEA [None]
  - DYSPNOEA [None]
  - ERYTHEMA NODOSUM [None]
  - HOT FLUSH [None]
  - HEART RATE INCREASED [None]
